FAERS Safety Report 17331411 (Version 1)
Quarter: 2020Q1

REPORT INFORMATION
  Report Type: Spontaneous
  Country: IT (occurrence: IT)
  Receive Date: 20200128
  Receipt Date: 20200128
  Transmission Date: 20200409
  Serious: Yes (Other)
  Sender: FDA-Public Use
  Company Number: IT-ABBVIE-19K-083-2755513-00

PATIENT
  Age: 46 Year
  Sex: Female
  Weight: 61 kg

DRUGS (2)
  1. HUMIRA [Suspect]
     Active Substance: ADALIMUMAB
     Indication: PRODUCT USED FOR UNKNOWN INDICATION
     Route: 058
  2. AMGEVITA [Suspect]
     Active Substance: ADALIMUMAB
     Indication: PSORIATIC ARTHROPATHY
     Route: 058
     Dates: start: 20190128, end: 20190417

REACTIONS (2)
  - Psoriatic arthropathy [Unknown]
  - Ear infection [Unknown]

NARRATIVE: CASE EVENT DATE: 20190204
